FAERS Safety Report 21645101 (Version 1)
Quarter: 2022Q4

REPORT INFORMATION
  Report Type: Spontaneous
  Country: US (occurrence: US)
  Receive Date: 20221125
  Receipt Date: 20221125
  Transmission Date: 20230113
  Serious: No
  Sender: FDA-Public Use
  Company Number: US-ABBVIE-4160802

PATIENT
  Weight: 108.86 kg

DRUGS (2)
  1. HUMIRA [Suspect]
     Active Substance: ADALIMUMAB
     Indication: Hidradenitis
     Dosage: STRENGTH: 80 MILLIGRAM?DRUG START DATE: MAY 2022
     Route: 058
  2. HUMIRA [Suspect]
     Active Substance: ADALIMUMAB
     Indication: Arthritis

REACTIONS (9)
  - Arthralgia [Unknown]
  - Illness [Unknown]
  - Gastrointestinal disorder [Unknown]
  - Fatigue [Unknown]
  - Rash [Unknown]
  - Swelling [Unknown]
  - Headache [Unknown]
  - Asthenia [Unknown]
  - Depression [Unknown]

NARRATIVE: CASE EVENT DATE: 20220101
